FAERS Safety Report 5166429-1 (Version None)
Quarter: 2006Q4

REPORT INFORMATION
  Report Type: 
  Country: None (occurrence: None)
  Receive Date: 20061207
  Receipt Date: 20061127
  Transmission Date: 20070319
  Serious: Yes (Other)
  Sender: FDA-Public Use
  Company Number: PHBS2006BE18454

PATIENT
  Age: 70 Year
  Sex: Male

DRUGS (12)
  1. AREDIA [Suspect]
     Indication: SPINAL COMPRESSION FRACTURE
     Dosage: 30 MG, EVERY 3 MONTHS
     Route: 042
     Dates: start: 19980929, end: 20010704
  2. AREDIA [Suspect]
     Dosage: 60 MG, EVERY 3 MONTHS
     Route: 042
     Dates: start: 20020418, end: 20030418
  3. ZOMETA [Suspect]
     Indication: SPINAL COMPRESSION FRACTURE
     Dosage: 4 MG, EVERY 4 WEEKS
     Route: 042
     Dates: start: 20030703, end: 20050224
  4. CORTICOSTEROIDS [Concomitant]
     Indication: ANAEMIA HAEMOLYTIC AUTOIMMUNE
     Route: 065
     Dates: start: 19980301
  5. PREDNISOLONE [Concomitant]
     Indication: ANAEMIA HAEMOLYTIC AUTOIMMUNE
     Dosage: 20 MG, QD
     Route: 048
     Dates: start: 20040401, end: 20040801
  6. PREDNISOLONE [Concomitant]
     Dosage: 80 MG, QD
     Route: 048
     Dates: start: 20040901, end: 20041101
  7. PREDNISOLONE [Concomitant]
     Dosage: 60 MG, QD
     Route: 048
     Dates: start: 20041201, end: 20050601
  8. PREDNISOLONE [Concomitant]
     Dosage: 20 MG, QD
     Route: 048
     Dates: start: 20050601
  9. CYCLOPHOSPHAMIDE [Concomitant]
     Indication: ANAEMIA HAEMOLYTIC AUTOIMMUNE
     Dosage: 150 MG, QD
     Route: 048
     Dates: start: 20040801, end: 20041101
  10. CYCLOSPORINE [Concomitant]
     Indication: ANAEMIA HAEMOLYTIC AUTOIMMUNE
     Dosage: 100 MG, BID
     Route: 048
     Dates: start: 20041201
  11. AMOXICILLIN [Concomitant]
     Indication: PROPHYLAXIS
     Dosage: 500 MG, QD
     Route: 048
     Dates: start: 20031001, end: 20040201
  12. TRAMADOL HCL [Concomitant]
     Indication: PAIN
     Route: 065
     Dates: start: 19980101

REACTIONS (6)
  - OSTEITIS [None]
  - OSTEONECROSIS [None]
  - PAIN IN JAW [None]
  - PRIMARY SEQUESTRUM [None]
  - TOOTH EXTRACTION [None]
  - WOUND DEBRIDEMENT [None]
